FAERS Safety Report 17047503 (Version 2)
Quarter: 2020Q1

REPORT INFORMATION
  Report Type: Spontaneous
  Country: BR (occurrence: BR)
  Receive Date: 20191119
  Receipt Date: 20200110
  Transmission Date: 20200409
  Serious: Yes (Other)
  Sender: FDA-Public Use
  Company Number: BR-PFIZER INC-2019491173

PATIENT
  Age: 63 Year
  Sex: Female
  Weight: 80 kg

DRUGS (4)
  1. GABAPENTIN. [Suspect]
     Active Substance: GABAPENTIN
     Indication: PAIN
     Dosage: 300 MG, 2X/DAY
     Dates: start: 201808, end: 20190118
  2. XALKORI [Suspect]
     Active Substance: CRIZOTINIB
     Indication: LUNG NEOPLASM MALIGNANT
     Dosage: 250 MG, 2X/DAY
     Dates: start: 20181228
  3. XALKORI [Suspect]
     Active Substance: CRIZOTINIB
     Dosage: 200 MG, 2X/DAY
     Dates: start: 20190110
  4. ATORVASTATIN [Concomitant]
     Active Substance: ATORVASTATIN
     Dosage: UNK
     Dates: start: 201808, end: 20190118

REACTIONS (12)
  - Malaise [Recovered/Resolved]
  - Hypersensitivity [Recovered/Resolved]
  - Swelling [Recovering/Resolving]
  - Decreased appetite [Recovered/Resolved]
  - Hepatotoxicity [Recovered/Resolved]
  - Decreased interest [Recovered/Resolved]
  - Dysstasia [Recovered/Resolved]
  - Hepatic enzyme increased [Recovered/Resolved]
  - Thyroid disorder [Recovered/Resolved]
  - Pruritus [Recovered/Resolved]
  - Insomnia [Recovered/Resolved]
  - Peripheral swelling [Not Recovered/Not Resolved]

NARRATIVE: CASE EVENT DATE: 20190102
